FAERS Safety Report 6425425-4 (Version None)
Quarter: 2009Q4

REPORT INFORMATION
  Report Type: 
  Country: None (occurrence: None)
  Receive Date: 20091029
  Receipt Date: 20090429
  Transmission Date: 20100525
  Serious: Yes (Other)
  Sender: FDA-Public Use
  Company Number: 191398USA

PATIENT
  Age: 10 Year
  Sex: Female

DRUGS (4)
  1. MERCAPTOPURINE [Suspect]
     Indication: CROHN'S DISEASE
     Dosage: START DOSE 25MG; GRADUALLY INCREASED TO 50MG
     Dates: start: 20070101, end: 20090201
  2. BUDESONIDE [Suspect]
  3. PENTASA [Concomitant]
  4. CLONIDINE [Concomitant]

REACTIONS (2)
  - HUMORAL IMMUNE DEFECT [None]
  - IMMUNODEFICIENCY COMMON VARIABLE [None]
